FAERS Safety Report 19172465 (Version 1)
Quarter: 2021Q2

REPORT INFORMATION
  Report Type: Spontaneous
  Country: JP (occurrence: JP)
  Receive Date: 20210423
  Receipt Date: 20210423
  Transmission Date: 20210717
  Serious: Yes (Other)
  Sender: FDA-Public Use
  Company Number: JP-SA-2021SA129822

PATIENT
  Age: 45 Year
  Sex: Male

DRUGS (3)
  1. ALLEGRA [Suspect]
     Active Substance: FEXOFENADINE HYDROCHLORIDE
     Indication: PRODUCT USED FOR UNKNOWN INDICATION
     Route: 048
  2. EPINASTINE [EPINASTINE HYDROCHLORIDE] [Concomitant]
     Indication: ALOPECIA AREATA
  3. EPINASTINE [EPINASTINE HYDROCHLORIDE] [Concomitant]
     Indication: ASTHMA
     Route: 065

REACTIONS (2)
  - Alopecia areata [Unknown]
  - Alopecia [Unknown]
